FAERS Safety Report 9473246 (Version 2)
Quarter: 2013Q4

REPORT INFORMATION
  Report Type: Spontaneous
  Country: IT (occurrence: IT)
  Receive Date: 20130823
  Receipt Date: 20131021
  Transmission Date: 20140711
  Serious: Yes (Hospitalization)
  Sender: FDA-Public Use
  Company Number: IT-TEVA-426400ISR

PATIENT
  Age: 73 Year
  Sex: Female

DRUGS (5)
  1. METFORMINA [Suspect]
     Indication: DIABETES MELLITUS
     Dosage: 1000 MILLIGRAM DAILY;
     Route: 048
     Dates: start: 20120101, end: 20130812
  2. LEVOFLOXACINA [Interacting]
     Dosage: 500 MILLIGRAM DAILY;
     Route: 048
     Dates: start: 20130801, end: 20130812
  3. KCL RETARD 600 MG [Concomitant]
  4. FERROGRAD 105 MG [Concomitant]
  5. ESOMEPRAZOLO MAGNESIO TRIIDRATO [Concomitant]

REACTIONS (2)
  - Hypoglycaemia [Recovered/Resolved]
  - Drug interaction [Recovered/Resolved]
